FAERS Safety Report 17065072 (Version 1)
Quarter: 2019Q4

REPORT INFORMATION
  Report Type: Spontaneous
  Country: US (occurrence: US)
  Receive Date: 20191024
  Receipt Date: 20191024
  Transmission Date: 20200122
  Serious: No
  Sender: FDA-Public Use
  Company Number: None

PATIENT
  Age: 33 Year
  Sex: Female

DRUGS (1)
  1. AUBAGIO [Suspect]
     Active Substance: TERIFLUNOMIDE
     Route: 048
     Dates: start: 201909

REACTIONS (4)
  - Gait disturbance [None]
  - Headache [None]
  - Limb discomfort [None]
  - Abdominal pain upper [None]

NARRATIVE: CASE EVENT DATE: 20191001
